FAERS Safety Report 17429481 (Version 2)
Quarter: 2020Q1

REPORT INFORMATION
  Report Type: Spontaneous
  Country: DE (occurrence: DE)
  Receive Date: 20200218
  Receipt Date: 20200302
  Transmission Date: 20200409
  Serious: Yes (Death, Hospitalization)
  Sender: FDA-Public Use
  Company Number: NVSC2020DE041949

PATIENT
  Age: 68 Year
  Sex: Male
  Weight: 94 kg

DRUGS (7)
  1. DOCETAXEL. [Suspect]
     Active Substance: DOCETAXEL
     Dosage: 110 MG, QD
     Route: 065
     Dates: start: 20161027, end: 20161224
  2. SULBACTAM [Concomitant]
     Active Substance: SULBACTAM
     Indication: PRODUCT USED FOR UNKNOWN INDICATION
     Dosage: 3 G, QD(DAILY DOSE: 3 G GRAM(S) EVERY DAY)
     Route: 042
     Dates: start: 20161018, end: 20161023
  3. BIBF 1120 [Suspect]
     Active Substance: NINTEDANIB
     Route: 065
  4. DOCETAXEL. [Suspect]
     Active Substance: DOCETAXEL
     Indication: NON-SMALL CELL LUNG CANCER
     Dosage: 150 MG, QD
     Route: 065
  5. BIBF 1120 [Suspect]
     Active Substance: NINTEDANIB
     Indication: NON-SMALL CELL LUNG CANCER
     Dosage: 400 MG, QD
     Route: 065
     Dates: start: 20161027, end: 20161224
  6. BIBF 1120 [Suspect]
     Active Substance: NINTEDANIB
     Dosage: 400 MG, QD
     Route: 065
  7. AMPICILLIN [Concomitant]
     Active Substance: AMPICILLIN
     Indication: PRODUCT USED FOR UNKNOWN INDICATION
     Dosage: 6 G, QD (DAILY DOSE: 6 G GRAM(S) EVERY DAY )
     Route: 042
     Dates: start: 20161018, end: 20161023

REACTIONS (3)
  - Malignant neoplasm progression [Fatal]
  - Leukopenia [Recovered/Resolved]
  - Mucosal inflammation [Recovered/Resolved]

NARRATIVE: CASE EVENT DATE: 20161013
